FAERS Safety Report 14679857 (Version 1)
Quarter: 2018Q1

REPORT INFORMATION
  Report Type: Spontaneous
  Country: US (occurrence: US)
  Receive Date: 20180325
  Receipt Date: 20180325
  Transmission Date: 20180509
  Serious: Yes (Life-Threatening, Disabling, Other)
  Sender: FDA-Public Use
  Company Number: None

PATIENT
  Sex: Female
  Weight: 90 kg

DRUGS (7)
  1. MORPHINE [Concomitant]
     Active Substance: MORPHINE
  2. HARVONI [Suspect]
     Active Substance: LEDIPASVIR\SOFOSBUVIR
     Indication: HEPATITIS C
     Dosage: ?          QUANTITY:1 CAPSULE(S);?
     Route: 048
  3. VITAMIN C [Concomitant]
     Active Substance: ASCORBIC ACID
  4. LETROZOLE. [Concomitant]
     Active Substance: LETROZOLE
  5. CALCIUM [Concomitant]
     Active Substance: CALCIUM
  6. FENTANYL. [Concomitant]
     Active Substance: FENTANYL
  7. VITAMIN D [Concomitant]
     Active Substance: CHOLECALCIFEROL

REACTIONS (1)
  - Breast cancer [None]
